FAERS Safety Report 9420103 (Version 2)
Quarter: 2013Q4

REPORT INFORMATION
  Report Type: Spontaneous
  Country: FR (occurrence: FR)
  Receive Date: 20130725
  Receipt Date: 20131107
  Transmission Date: 20140711
  Serious: Yes (Hospitalization)
  Sender: FDA-Public Use
  Company Number: FR-GLAXOSMITHKLINE-B0908571A

PATIENT
  Age: 69 Year
  Sex: Male

DRUGS (11)
  1. ADARTREL [Suspect]
     Indication: RESTLESS LEGS SYNDROME
     Route: 048
     Dates: start: 20130318, end: 20130629
  2. COVERAM [Suspect]
     Indication: PRODUCT USED FOR UNKNOWN INDICATION
     Dosage: 1TAB IN THE MORNING
     Route: 048
     Dates: start: 201112, end: 20130629
  3. METFORMIN [Concomitant]
     Route: 048
  4. TAMSULOSIN [Concomitant]
     Dosage: .4MG PER DAY
     Route: 065
     Dates: start: 201105
  5. CHONDROSULF [Concomitant]
     Route: 065
  6. TEMESTA [Concomitant]
     Route: 065
  7. ASPIRIN [Concomitant]
     Indication: PAIN
     Route: 065
  8. NON-STEROIDAL ANTI-INFLAMMATORY DRUG [Concomitant]
     Route: 065
  9. GASTROINTESTINAL DRUG [Concomitant]
     Route: 065
  10. CLARITHROMYCIN [Concomitant]
     Indication: BRONCHITIS
     Dates: start: 20130620, end: 20130626
  11. PREDNISOLONE [Concomitant]
     Indication: BRONCHITIS
     Route: 065
     Dates: start: 20130620, end: 20130623

REACTIONS (9)
  - Angioedema [Recovered/Resolved]
  - Macroglossia [Recovered/Resolved]
  - Paraesthesia oral [Recovered/Resolved]
  - Local swelling [Recovered/Resolved]
  - Dysphonia [Recovered/Resolved]
  - Palatal oedema [Recovered/Resolved]
  - Oedema mouth [Recovered/Resolved]
  - Dysphagia [Recovered/Resolved]
  - Incorrect dose administered [Unknown]
